FAERS Safety Report 8678488 (Version 2)
Quarter: 2012Q4

REPORT INFORMATION
  Report Type: 
  Country: CA (occurrence: CA)
  Receive Date: 20120723
  Receipt Date: 20121022
  Transmission Date: 20130627
  Serious: Yes (Hospitalization)
  Sender: FDA-Public Use
  Company Number: CA-BAYER-2012-070358

PATIENT
  Age: 39 Year
  Sex: Female
  Weight: 225 kg

DRUGS (13)
  1. AVELOX [Suspect]
     Indication: SINUSITIS
  2. REMICADE [Suspect]
     Indication: RHEUMATOID ARTHRITIS
     Dosage: 1 every 8 weeks
     Route: 042
     Dates: start: 20071018
  3. REMICADE [Suspect]
     Indication: RHEUMATOID ARTHRITIS
     Route: 065
  4. DIOVAN [Concomitant]
  5. PREDNISONE [Concomitant]
  6. PREVACID [Concomitant]
  7. TYLENOL W/CODEINE NO. 4 [Concomitant]
  8. WELLBUTRIN [Concomitant]
  9. PARACETAMOL WITH CODEINE PHOSPHATE [Concomitant]
  10. BUPROPION [Concomitant]
  11. LANSOPRAZOLE [Concomitant]
  12. VALSARTAN [Concomitant]
  13. INFLIXIMAB [Concomitant]
     Indication: RHEUMATOID ARTHRITIS

REACTIONS (2)
  - Sinusitis [Recovering/Resolving]
  - Hypersensitivity [Recovering/Resolving]
